FAERS Safety Report 23599689 (Version 1)
Quarter: 2024Q1

REPORT INFORMATION
  Report Type: Spontaneous
  Country: US (occurrence: US)
  Receive Date: 20240306
  Receipt Date: 20240306
  Transmission Date: 20240410
  Serious: No
  Sender: FDA-Public Use
  Company Number: US-GSK-US2024025059

PATIENT
  Sex: Female

DRUGS (1)
  1. LAMICTAL [Suspect]
     Active Substance: LAMOTRIGINE
     Indication: Bipolar disorder
     Dosage: 1 DF, QD, 100MG
     Dates: end: 20231014

REACTIONS (4)
  - Feeling abnormal [Unknown]
  - Thinking abnormal [Unknown]
  - Drug ineffective [Unknown]
  - Product dose omission issue [Unknown]
